FAERS Safety Report 8554400-9 (Version None)
Quarter: 2012Q3

REPORT INFORMATION
  Report Type: 
  Country: None (occurrence: None)
  Receive Date: 20120731
  Receipt Date: 20120723
  Transmission Date: 20120928
  Serious: Yes (Hospitalization)
  Sender: FDA-Public Use
  Company Number: US-009507513-1207USA009867

PATIENT

DRUGS (6)
  1. ZOCOR [Suspect]
     Dosage: 40 MG, UNK
     Route: 048
  2. PRILOSEC [Suspect]
     Dosage: 40 MG, UNK
     Route: 048
  3. ACIDEX (CALCIUM CARBONATE (+) SODIUM ALGINATE (+) SODIUM BICARBONATE) [Suspect]
  4. ASPIRIN [Suspect]
     Dosage: 75 MG, UNK
     Route: 048
  5. METFORMIN HYDROCHLORIDE [Concomitant]
     Dosage: 1.5 G, UNK
     Route: 048
  6. CODEINE PHOSPHATE AND ACETAMINOPHEN [Suspect]
     Dosage: 1 DF, UNK
     Route: 048

REACTIONS (1)
  - ABDOMINAL PAIN UPPER [None]
